FAERS Safety Report 6804137-9 (Version None)
Quarter: 2010Q2

REPORT INFORMATION
  Report Type: 
  Country: None (occurrence: None)
  Receive Date: 20100628
  Receipt Date: 20080116
  Transmission Date: 20101027
  Serious: No
  Sender: FDA-Public Use
  Company Number: US-PFIZER INC-2006151858

PATIENT
  Sex: Female
  Weight: 44.45 kg

DRUGS (7)
  1. RELPAX [Suspect]
     Indication: MIGRAINE
     Route: 048
     Dates: start: 20061001
  2. DARVOCET [Concomitant]
  3. ADVIL LIQUI-GELS [Concomitant]
  4. VITAMINS [Concomitant]
  5. FIORICET [Concomitant]
  6. MOTRIN [Concomitant]
  7. PARA-SELTZER [Concomitant]

REACTIONS (9)
  - ANAEMIA [None]
  - ARTHRALGIA [None]
  - DRUG INEFFECTIVE [None]
  - FATIGUE [None]
  - IMPAIRED HEALING [None]
  - MYALGIA [None]
  - RASH [None]
  - SKIN DISCOMFORT [None]
  - SKIN ULCER [None]
